FAERS Safety Report 6199157-4 (Version None)
Quarter: 2009Q2

REPORT INFORMATION
  Report Type: 
  Country: None (occurrence: None)
  Receive Date: 20090522
  Receipt Date: 20090422
  Transmission Date: 20091009
  Serious: No
  Sender: FDA-Public Use
  Company Number: A0769334A

PATIENT
  Age: 83 Year
  Sex: Female

DRUGS (4)
  1. VERAMYST [Suspect]
     Indication: SINUS DISORDER
     Dosage: 2SPR PER DAY
     Route: 045
     Dates: start: 20090202, end: 20090216
  2. PRILOSEC [Concomitant]
  3. VITAMINS [Concomitant]
  4. XYZAL [Concomitant]

REACTIONS (2)
  - HEADACHE [None]
  - PRODUCT QUALITY ISSUE [None]
